FAERS Safety Report 7671326-3 (Version None)
Quarter: 2011Q3

REPORT INFORMATION
  Report Type: 
  Country: None (occurrence: None)
  Receive Date: 20110803
  Receipt Date: 20110728
  Transmission Date: 20111222
  Serious: Yes (Hospitalization)
  Sender: FDA-Public Use
  Company Number: B0735937A

PATIENT
  Age: 37 Year
  Sex: Male

DRUGS (3)
  1. STAVUDINE [Suspect]
     Indication: HIV INFECTION
  2. LOPINAVIR AND RITONAVIR [Suspect]
     Indication: HIV INFECTION
  3. LAMIVUDINE [Suspect]
     Indication: HIV INFECTION

REACTIONS (8)
  - RETINAL EXUDATES [None]
  - VASCULITIS [None]
  - VISUAL ACUITY REDUCED [None]
  - OPTIC NEUROPATHY [None]
  - IMMUNE RECONSTITUTION SYNDROME [None]
  - VITREOUS OPACITIES [None]
  - SCOTOMA [None]
  - CYTOMEGALOVIRUS INFECTION [None]
